FAERS Safety Report 8070483-7 (Version None)
Quarter: 2012Q1

REPORT INFORMATION
  Report Type: 
  Country: None (occurrence: None)
  Receive Date: 20120125
  Receipt Date: 20120123
  Transmission Date: 20120608
  Serious: Yes (Hospitalization)
  Sender: FDA-Public Use
  Company Number: DE-ROCHE-1030786

PATIENT
  Sex: Female
  Weight: 76 kg

DRUGS (11)
  1. AVASTIN [Suspect]
     Dosage: DOSE REDUCED, LAST DOSE PRIOR TO SAE: 05/JAN/2012
     Route: 042
  2. ZOLPIDEM [Concomitant]
     Dates: start: 20111214
  3. PACLITAXEL [Suspect]
     Indication: BREAST CANCER
     Route: 042
     Dates: start: 20110914
  4. TILIDINE [Concomitant]
     Dates: start: 20110105
  5. DOXORUBICIN HYDROCHLORIDE [Suspect]
     Dosage: DOSE REDUCED, LAST DOSE PRIOR TO SAE: 05/JAN/2012
     Route: 042
     Dates: start: 20111207
  6. DOXORUBICIN HYDROCHLORIDE [Suspect]
     Indication: BREAST CANCER
     Route: 042
     Dates: start: 20110914
  7. AVASTIN [Suspect]
     Indication: BREAST CANCER
     Dosage: LAST DOSE PRIOR TO SAE: 05/JAN/2012
     Route: 042
     Dates: start: 20110914
  8. CARBOPLATIN [Suspect]
     Dosage: DOSE REDUCED. LAST DOSE PRIOR TO SAE: 05/JAN/2012
     Route: 042
     Dates: start: 20111207
  9. CARBOPLATIN [Suspect]
     Indication: BREAST CANCER
     Route: 042
     Dates: start: 20110914
  10. PACLITAXEL [Suspect]
     Dosage: DOSE REDUCED, LAST DOSE PRIOR TO SAE: 05/JAN/2012
     Route: 042
     Dates: start: 20111207
  11. DIPYRONE TAB [Concomitant]
     Dates: start: 20111207, end: 20120105

REACTIONS (1)
  - ANAL FISSURE [None]
